FAERS Safety Report 4861093-0 (Version None)
Quarter: 2005Q4

REPORT INFORMATION
  Report Type: 
  Country: None (occurrence: None)
  Receive Date: 20051220
  Receipt Date: 20051213
  Transmission Date: 20060501
  Serious: Yes (Other)
  Sender: FDA-Public Use
  Company Number: GB-GLAXOSMITHKLINE-B0403573A

PATIENT
  Age: 35 Year
  Sex: Female

DRUGS (1)
  1. LAMIVUDINE [Suspect]
     Dosage: 100MG PER DAY
     Route: 048
     Dates: start: 20040715, end: 20051206

REACTIONS (2)
  - ANGIONEUROTIC OEDEMA [None]
  - URTICARIA [None]
